FAERS Safety Report 22207987 (Version 2)
Quarter: 2023Q2

REPORT INFORMATION
  Report Type: Spontaneous
  Country: IT (occurrence: IT)
  Receive Date: 20230413
  Receipt Date: 20230416
  Transmission Date: 20230722
  Serious: Yes (Hospitalization, Other)
  Sender: FDA-Public Use
  Company Number: None

PATIENT
  Age: 64 Year
  Sex: Male

DRUGS (2)
  1. DICLOFENAC [Suspect]
     Active Substance: DICLOFENAC
     Indication: Arthralgia
     Dosage: 1 DOSAGE FORM, QD
     Route: 030
     Dates: start: 20230327, end: 20230331
  2. DICLOFENAC [Suspect]
     Active Substance: DICLOFENAC
     Indication: Back pain

REACTIONS (2)
  - Intra-abdominal haematoma [Recovering/Resolving]
  - Administration site haematoma [Recovering/Resolving]

NARRATIVE: CASE EVENT DATE: 20230330
